FAERS Safety Report 5893029-8 (Version None)
Quarter: 2008Q3

REPORT INFORMATION
  Report Type: 
  Country: None (occurrence: None)
  Receive Date: 20080923
  Receipt Date: 20080513
  Transmission Date: 20090109
  Serious: No
  Sender: FDA-Public Use
  Company Number: US-ASTRAZENECA-2007UW01962

PATIENT
  Age: 4588 Day
  Sex: Female
  Weight: 77.3 kg

DRUGS (2)
  1. SEROQUEL [Suspect]
     Indication: SCHIZOPHRENIA
     Route: 048
     Dates: start: 19970601
  2. RISPERDAL [Concomitant]

REACTIONS (2)
  - DIABETES MELLITUS [None]
  - ORAL SURGERY [None]
